FAERS Safety Report 8821863 (Version 7)
Quarter: 2014Q1

REPORT INFORMATION
  Report Type: Report from Study
  Country: DE (occurrence: DE)
  Receive Date: 20121002
  Receipt Date: 20140122
  Transmission Date: 20141002
  Serious: Yes (Hospitalization)
  Sender: FDA-Public Use
  Company Number: DE-ROCHE-1077352

PATIENT
  Age: 72 Year
  Sex: Female
  Weight: 55 kg

DRUGS (8)
  1. VEMURAFENIB [Suspect]
     Indication: MALIGNANT MELANOMA
     Route: 048
     Dates: start: 20120613
  2. VEMURAFENIB [Suspect]
     Route: 048
     Dates: start: 20120130, end: 20120607
  3. VEMURAFENIB [Suspect]
     Route: 048
     Dates: start: 20120112, end: 20120129
  4. COAPROVEL [Concomitant]
     Dosage: 150/12.5 MG
     Route: 065
     Dates: start: 2006
  5. VOLTAREN [Concomitant]
     Route: 065
     Dates: start: 2010
  6. FAUSTAN [Concomitant]
  7. MORONAL [Concomitant]
     Route: 065
     Dates: start: 20120502
  8. FERRO SANOL DUODENAL [Concomitant]
     Route: 065
     Dates: start: 20120211

REACTIONS (1)
  - Gastritis haemorrhagic [Recovered/Resolved]
